FAERS Safety Report 11399783 (Version 1)
Quarter: 2015Q3

REPORT INFORMATION
  Report Type: Spontaneous
  Country: US (occurrence: None)
  Receive Date: 20150805
  Receipt Date: 20150805
  Transmission Date: 20151125
  Serious: Yes (Hospitalization)
  Sender: FDA-Public Use
  Company Number: GTI003036

PATIENT
  Age: 61 Year
  Sex: Female
  Weight: 81.19 kg

DRUGS (30)
  1. NOVOLOG [Concomitant]
     Active Substance: INSULIN ASPART
  2. BIAXIN [Concomitant]
     Active Substance: CLARITHROMYCIN
  3. GAMUNEX-C [Suspect]
     Active Substance: HUMAN IMMUNOGLOBULIN G
     Indication: IMMUNODEFICIENCY
     Dosage: 40 GM
     Route: 042
     Dates: start: 20060908
  4. LANTUS [Concomitant]
     Active Substance: INSULIN GLARGINE
  5. LISINOPRIL. [Concomitant]
     Active Substance: LISINOPRIL
  6. FLUDARABINE [Concomitant]
     Active Substance: FLUDARABINE PHOSPHATE
  7. RITUXAN [Concomitant]
     Active Substance: RITUXIMAB
  8. TYLENOL [Concomitant]
     Active Substance: ACETAMINOPHEN
  9. METOPROLOL [Concomitant]
     Active Substance: METOPROLOL
  10. VITAMIN E NOS [Concomitant]
  11. ZETIA [Concomitant]
     Active Substance: EZETIMIBE
  12. IBUPROFEN. [Concomitant]
     Active Substance: IBUPROFEN
  13. BENADRYL [Concomitant]
     Active Substance: DIPHENHYDRAMINE HYDROCHLORIDE
  14. BACTRIM [Concomitant]
     Active Substance: SULFAMETHOXAZOLE\TRIMETHOPRIM
  15. DECADRON [Concomitant]
     Active Substance: DEXAMETHASONE
  16. SIMVASTATIN. [Concomitant]
     Active Substance: SIMVASTATIN
  17. ZOFRAN [Concomitant]
     Active Substance: ONDANSETRON HYDROCHLORIDE
  18. GAMMAGARD [Concomitant]
     Active Substance: HUMAN IMMUNOGLOBULIN G
  19. BENADRYL [Concomitant]
     Active Substance: DIPHENHYDRAMINE HYDROCHLORIDE
  20. INSULIN [Concomitant]
     Active Substance: INSULIN NOS
  21. BENAZEPRIL [Concomitant]
     Active Substance: BENAZEPRIL HYDROCHLORIDE
  22. DOCUSATE SODIUM. [Concomitant]
     Active Substance: DOCUSATE SODIUM
  23. ALBUTEROL SULFATE. [Concomitant]
     Active Substance: ALBUTEROL SULFATE
  24. ERYTHROMYCIN. [Concomitant]
     Active Substance: ERYTHROMYCIN
  25. GLIMEPIRIDE. [Concomitant]
     Active Substance: GLIMEPIRIDE
  26. PRAVASTATIN [Concomitant]
     Active Substance: PRAVASTATIN\PRAVASTATIN SODIUM
  27. SYNTHROID [Concomitant]
     Active Substance: LEVOTHYROXINE SODIUM
  28. GLUCOVANCE [Concomitant]
     Active Substance: GLYBURIDE\METFORMIN HYDROCHLORIDE
  29. METFORMIN [Concomitant]
     Active Substance: METFORMIN HYDROCHLORIDE
  30. ZOFRAN [Concomitant]
     Active Substance: ONDANSETRON HYDROCHLORIDE

REACTIONS (12)
  - Chills [None]
  - Migraine [None]
  - Vomiting [None]
  - Pyrexia [None]
  - Blood pressure increased [None]
  - Headache [None]
  - Neck pain [None]
  - Meningitis chemical [None]
  - Fatigue [None]
  - Nausea [None]
  - Musculoskeletal stiffness [None]
  - Photophobia [None]

NARRATIVE: CASE EVENT DATE: 20060909
